FAERS Safety Report 8896765 (Version 1)
Quarter: 2012Q4

REPORT INFORMATION
  Report Type: 
  Country: AU (occurrence: AU)
  Receive Date: 20121108
  Receipt Date: 20121108
  Transmission Date: 20130627
  Serious: Yes (Hospitalization, Other)
  Sender: FDA-Public Use
  Company Number: AU-PURDUE-USA-2012-0095281

PATIENT
  Sex: Female

DRUGS (3)
  1. OXYCONTIN TABLETS [Suspect]
     Indication: INTERVERTEBRAL DISC PROTRUSION
     Dosage: 40 mg, UNK
     Route: 048
  2. OXYCONTIN TABLETS [Suspect]
     Dosage: 100 mg tablets two or three times a day
     Route: 048
  3. OXYNORM [Suspect]
     Indication: INTERVERTEBRAL DISC PROTRUSION
     Dosage: Unknown
     Route: 048

REACTIONS (6)
  - Intentional overdose [Unknown]
  - Drug dependence [Unknown]
  - Suicidal ideation [Unknown]
  - Euphoric mood [Unknown]
  - Depressed level of consciousness [Unknown]
  - Pain [Unknown]
